FAERS Safety Report 9014252 (Version 1)
Quarter: 2013Q1

REPORT INFORMATION
  Report Type: Spontaneous
  Country: US (occurrence: US)
  Receive Date: 20130115
  Receipt Date: 20130115
  Transmission Date: 20140127
  Serious: Yes (Other)
  Sender: FDA-Public Use
  Company Number: US-009507513-0911USA00581

PATIENT
  Age: 24 Month
  Sex: Male
  Weight: 12.25 kg

DRUGS (2)
  1. SINGULAIR [Suspect]
     Indication: ASTHMA
     Dosage: 4 MG, QD
     Route: 048
     Dates: start: 20070122, end: 20090212
  2. SINGULAIR [Suspect]
     Indication: MULTIPLE ALLERGIES

REACTIONS (3)
  - Anxiety [Recovered/Resolved]
  - Gastric disorder [Recovered/Resolved]
  - Irritability [Recovered/Resolved]
